FAERS Safety Report 5037209-2 (Version None)
Quarter: 2006Q2

REPORT INFORMATION
  Report Type: 
  Country: None (occurrence: None)
  Receive Date: 20060623
  Receipt Date: 20060607
  Transmission Date: 20061013
  Serious: Yes (Other)
  Sender: FDA-Public Use
  Company Number: SE200604001405

PATIENT
  Sex: Male
  Weight: 55 kg

DRUGS (2)
  1. GEMZAR [Suspect]
     Indication: GALLBLADDER CANCER
     Dosage: 1500 MG, OTHER, INTRAVENOUS
     Route: 042
     Dates: start: 20050602, end: 20060401
  2. OXYCONTIN [Concomitant]

REACTIONS (4)
  - NEOPLASM PROGRESSION [None]
  - PAPILLOEDEMA [None]
  - RETINAL DEGENERATION [None]
  - RETINAL ISCHAEMIA [None]
